FAERS Safety Report 4339979-5 (Version None)
Quarter: 2004Q2

REPORT INFORMATION
  Report Type: 
  Country: None (occurrence: None)
  Receive Date: 20040416
  Receipt Date: 20040325
  Transmission Date: 20050107
  Serious: Yes (Other)
  Sender: FDA-Public Use
  Company Number: PHNR2004AU00805

PATIENT
  Age: 80 Year
  Sex: Female

DRUGS (1)
  1. LAMISIL [Suspect]
     Indication: ONYCHOMYCOSIS
     Dosage: 250 G, QD
     Route: 048
     Dates: start: 20030801, end: 20030801

REACTIONS (2)
  - LYMPHOMA [None]
  - RASH [None]
